FAERS Safety Report 4897410-5 (Version None)
Quarter: 2006Q1

REPORT INFORMATION
  Report Type: 
  Country: None (occurrence: None)
  Receive Date: 20060201
  Receipt Date: 20060123
  Transmission Date: 20060701
  Serious: Yes (Death, Hospitalization)
  Sender: FDA-Public Use
  Company Number: DE-ABBOTT-06P-062-0323177-00

PATIENT
  Sex: Female

DRUGS (4)
  1. SEVORANE LIQUID FOR INHALATION [Suspect]
     Indication: ANAESTHESIA
  2. ULTIVA [Concomitant]
     Indication: ANAESTHESIA
  3. MIDAZOLAM HYDROCHLORIDE [Concomitant]
     Indication: ANAESTHESIA
  4. IBUPROFEN [Concomitant]
     Indication: PAIN

REACTIONS (6)
  - COAGULOPATHY [None]
  - COMA HEPATIC [None]
  - HEPATIC FAILURE [None]
  - HEPATITIS B VIRUS [None]
  - LOSS OF CONSCIOUSNESS [None]
  - NAUSEA [None]
